FAERS Safety Report 7659119-4 (Version None)
Quarter: 2011Q3

REPORT INFORMATION
  Report Type: 
  Country: None (occurrence: None)
  Receive Date: 20110805
  Receipt Date: 20110211
  Transmission Date: 20111222
  Serious: Yes (Hospitalization)
  Sender: FDA-Public Use
  Company Number: US-GLAXOSMITHKLINE-A0913481A

PATIENT
  Age: 62 Year
  Sex: Male
  Weight: 111.4 kg

DRUGS (7)
  1. LISINOPRIL AND HYDROCHLOROTHIAZIDE [Concomitant]
  2. ACTOS [Concomitant]
     Dates: start: 20011121
  3. AMARYL [Concomitant]
     Dates: end: 20011121
  4. LIPITOR [Concomitant]
  5. ZESTORETIC [Concomitant]
  6. AVANDIA [Suspect]
     Indication: DIABETES MELLITUS
     Dosage: 4MG PER DAY
     Route: 048
     Dates: start: 20010418
  7. FLOMAX [Concomitant]

REACTIONS (5)
  - CORONARY ARTERY DISEASE [None]
  - VENTRICULAR FIBRILLATION [None]
  - HYPOXIC-ISCHAEMIC ENCEPHALOPATHY [None]
  - MYOCARDIAL INFARCTION [None]
  - CARDIAC ARREST [None]
